FAERS Safety Report 25429376 (Version 4)
Quarter: 2025Q3

REPORT INFORMATION
  Report Type: Report from Study
  Country: US (occurrence: US)
  Receive Date: 20250612
  Receipt Date: 20250917
  Transmission Date: 20251021
  Serious: Yes (Hospitalization, Other)
  Sender: TAKEDA
  Company Number: US-TAKEDA-2025TUS046918

PATIENT
  Age: 75 Year
  Sex: Male
  Weight: 160 kg

DRUGS (2)
  1. .ALPHA.1-PROTEINASE INHIBITOR HUMAN [Suspect]
     Active Substance: .ALPHA.1-PROTEINASE INHIBITOR HUMAN
     Indication: Alpha-1 antitrypsin deficiency
     Dosage: 60 MILLIGRAM/KILOGRAM, 1/WEEK
  2. .ALPHA.1-PROTEINASE INHIBITOR HUMAN [Suspect]
     Active Substance: .ALPHA.1-PROTEINASE INHIBITOR HUMAN

REACTIONS (9)
  - Pneumonia [Unknown]
  - Pulmonary oedema [Recovered/Resolved]
  - Cataract [Unknown]
  - Road traffic accident [Recovered/Resolved]
  - Arthritis infective [Unknown]
  - Weight increased [Unknown]
  - Back injury [Recovered/Resolved]
  - Fluid retention [Unknown]
  - Dyspnoea [Unknown]
